FAERS Safety Report 6095736-3 (Version None)
Quarter: 2009Q1

REPORT INFORMATION
  Report Type: 
  Country: None (occurrence: None)
  Receive Date: 20090227
  Receipt Date: 20080605
  Transmission Date: 20090719
  Serious: No
  Sender: FDA-Public Use
  Company Number: A0731499A

PATIENT
  Age: 60 Year
  Sex: Female

DRUGS (11)
  1. LAMICTAL [Suspect]
     Indication: BIPOLAR DISORDER
     Dosage: 100MG PER DAY
     Route: 048
     Dates: start: 20080401
  2. ESTROGENIC SUBSTANCE [Concomitant]
  3. PROGESTERONE [Concomitant]
  4. THYROID MEDICATION [Concomitant]
  5. THEOLIN [Concomitant]
  6. EFFEXOR [Concomitant]
  7. TRAZODONE HCL [Concomitant]
  8. LUNESTA [Concomitant]
  9. XANAX [Concomitant]
  10. NUTRITIONAL SUPPLEMENT [Concomitant]
  11. NIACIN [Concomitant]

REACTIONS (1)
  - BLOOD CORTISOL DECREASED [None]
